FAERS Safety Report 6670347-7 (Version None)
Quarter: 2010Q2

REPORT INFORMATION
  Report Type: 
  Country: None (occurrence: None)
  Receive Date: 20100405
  Receipt Date: 20100401
  Transmission Date: 20101027
  Serious: Yes (Death, Other)
  Sender: FDA-Public Use
  Company Number: 2010SP019200

PATIENT
  Age: 68 Year
  Sex: Male

DRUGS (2)
  1. REBETOL               (RIBAVIRIN /00816701/) [Suspect]
     Indication: HEPATITIS C
     Dosage: PO
     Route: 048
     Dates: start: 20100308
  2. INTERFERON [Suspect]
     Indication: HEPATITIS C
     Dosage: MIU;QD;IV
     Route: 042
     Dates: start: 20100308

REACTIONS (4)
  - CARDIAC ARREST [None]
  - INFUSION RELATED REACTION [None]
  - LOSS OF CONSCIOUSNESS [None]
  - RESPIRATORY ARREST [None]
